FAERS Safety Report 9290383 (Version 2)
Quarter: 2013Q2

REPORT INFORMATION
  Report Type: Spontaneous
  Country: US (occurrence: US)
  Receive Date: 20130515
  Receipt Date: 20130517
  Transmission Date: 20140414
  Serious: Yes (Other)
  Sender: FDA-Public Use
  Company Number: US-PFIZER INC-2013149353

PATIENT
  Age: 63 Year
  Sex: Female
  Weight: 72.56 kg

DRUGS (2)
  1. DILANTIN [Suspect]
     Indication: CONVULSION
     Dosage: 130MG (100MG CAPSULE+30MG CAPSULE), 2X/DAY
     Route: 048
     Dates: start: 1953
  2. TEGRETOL [Concomitant]
     Indication: CONVULSION
     Dosage: UNK

REACTIONS (3)
  - Renal disorder [Unknown]
  - Urinary tract disorder [Unknown]
  - Reaction to drug excipients [Unknown]
